FAERS Safety Report 22301408 (Version 2)
Quarter: 2023Q2

REPORT INFORMATION
  Report Type: Spontaneous
  Country: JP (occurrence: JP)
  Receive Date: 20230509
  Receipt Date: 20230518
  Transmission Date: 20230721
  Serious: Yes (Other)
  Sender: FDA-Public Use
  Company Number: JP-CHUGAI-2023016738

PATIENT
  Age: 73 Year
  Sex: Male

DRUGS (5)
  1. AVASTIN [Suspect]
     Active Substance: BEVACIZUMAB
     Indication: Rectal cancer
     Dosage: ONCE/3WEEKS
     Route: 041
  2. OXALIPLATIN [Concomitant]
     Active Substance: OXALIPLATIN
     Indication: Rectal cancer
     Dosage: UNK
     Route: 041
  3. FLUOROURACIL [Concomitant]
     Active Substance: FLUOROURACIL
     Indication: Rectal cancer
     Dosage: UNK
     Route: 041
  4. FLUOROURACIL [Concomitant]
     Active Substance: FLUOROURACIL
     Dosage: UNK
     Route: 040
  5. LEVOLEUCOVORIN CALCIUM [Concomitant]
     Active Substance: LEVOLEUCOVORIN CALCIUM
     Indication: Rectal cancer
     Dosage: UNK
     Route: 041

REACTIONS (1)
  - Bladder neoplasm [Unknown]

NARRATIVE: CASE EVENT DATE: 20230508
